FAERS Safety Report 6100568-3 (Version None)
Quarter: 2009Q1

REPORT INFORMATION
  Report Type: 
  Country: None (occurrence: None)
  Receive Date: 20090303
  Receipt Date: 20090217
  Transmission Date: 20090719
  Serious: Yes (Hospitalization)
  Sender: FDA-Public Use
  Company Number: FR-ROCHE-615455

PATIENT
  Age: 75 Year
  Sex: Female

DRUGS (5)
  1. TAMIFLU [Suspect]
     Indication: INFLUENZA
     Route: 065
  2. INSULINE [Concomitant]
  3. METFORMIN HCL [Concomitant]
  4. AMLOR [Concomitant]
  5. ANGIOTENSIN CONVERTING ENZYME INHIBITOR [Concomitant]

REACTIONS (1)
  - ANURIA [None]
